FAERS Safety Report 9694037 (Version 1)
Quarter: 2013Q4

REPORT INFORMATION
  Report Type: Spontaneous
  Country: KR (occurrence: None)
  Receive Date: 20131114
  Receipt Date: 20131114
  Transmission Date: 20140711
  Serious: Yes (Other)
  Sender: FDA-Public Use
  Company Number: KR-AIKEM-000220

PATIENT
  Age: 21 Year
  Sex: Male

DRUGS (3)
  1. MYCOPHENOLATE MOFETIL (MYCOPHENOLATE MOFETIL) [Suspect]
     Indication: PROPHYLAXIS AGAINST GRAFT VERSUS HOST DISEASE
  2. CYCLOSPORIN [Suspect]
     Indication: PROPHYLAXIS AGAINST GRAFT VERSUS HOST DISEASE
  3. FLUDARABINE (FLUDARABINE) [Concomitant]

REACTIONS (5)
  - Cystitis haemorrhagic [None]
  - BK virus infection [None]
  - Epstein-Barr viraemia [None]
  - Nephropathy [None]
  - Toxicity to various agents [None]
